FAERS Safety Report 25134854 (Version 2)
Quarter: 2025Q2

REPORT INFORMATION
  Report Type: Spontaneous
  Country: JP (occurrence: JP)
  Receive Date: 20250328
  Receipt Date: 20250417
  Transmission Date: 20250716
  Serious: Yes (Hospitalization)
  Sender: BAYER
  Company Number: JP-BAYER-2025A041548

PATIENT
  Age: 84 Year
  Sex: Female

DRUGS (1)
  1. ADEMPAS [Suspect]
     Active Substance: RIOCIGUAT
     Indication: Pulmonary hypertension
     Route: 048
     Dates: start: 202205

REACTIONS (2)
  - Fracture [Not Recovered/Not Resolved]
  - Fall [None]

NARRATIVE: CASE EVENT DATE: 20250201
